FAERS Safety Report 26186352 (Version 1)
Quarter: 2025Q4

REPORT INFORMATION
  Report Type: Spontaneous
  Country: US (occurrence: None)
  Receive Date: 20251219
  Receipt Date: 20251219
  Transmission Date: 20260117
  Serious: Yes (Hospitalization)
  Sender: FDA-CTU
  Company Number: None

PATIENT
  Age: 75 Year
  Sex: Female

DRUGS (16)
  1. TEMOZOLOMIDE [Suspect]
     Active Substance: TEMOZOLOMIDE
     Indication: Brain neoplasm malignant
     Dosage: 210 MG  DAILY FOR 5 DAYS, THEN 23 DAYS OFF ORAL
     Route: 048
     Dates: start: 20251113
  2. TEMOZOLOMIDE [Suspect]
     Active Substance: TEMOZOLOMIDE
     Indication: Brain neoplasm malignant
     Dosage: 210 MG DAILY ORAL
     Route: 048
     Dates: start: 20251113
  3. ESTRADIOL [Concomitant]
     Active Substance: ESTRADIOL
  4. NORETHINDRONE [Concomitant]
     Active Substance: NORETHINDRONE
  5. FLUAD 65+ [Concomitant]
  6. vitamin b-complex w/b-12 [Concomitant]
  7. VITAMIN C [Concomitant]
     Active Substance: ASCORBIC ACID
  8. FISH OIL [Concomitant]
     Active Substance: FISH OIL
  9. FIBERCON [Concomitant]
     Active Substance: CALCIUM POLYCARBOPHIL
  10. IBUPROFEN [Concomitant]
     Active Substance: IBUPROFEN
  11. TYLENOL [Concomitant]
     Active Substance: ACETAMINOPHEN
  12. VITAMINS [Concomitant]
     Active Substance: VITAMINS
  13. VITAMIN D [Concomitant]
     Active Substance: VITAMIN D NOS
  14. VITAMIN D [Concomitant]
     Active Substance: VITAMIN D NOS
  15. GLUCOS/CHOND COMPLEX [Concomitant]
  16. ELIQUIS [Concomitant]
     Active Substance: APIXABAN

REACTIONS (2)
  - Laboratory test abnormal [None]
  - Renal impairment [None]

NARRATIVE: CASE EVENT DATE: 20251217
